FAERS Safety Report 26149009 (Version 1)
Quarter: 2025Q4

REPORT INFORMATION
  Report Type: Spontaneous
  Country: US (occurrence: US)
  Receive Date: 20251212
  Receipt Date: 20251212
  Transmission Date: 20260119
  Serious: No
  Sender: DR REDDYS
  Company Number: US-DRL-USA-USA/2025/11/018020

PATIENT
  Age: 52 Year
  Sex: Male

DRUGS (2)
  1. CALCITONIN [Suspect]
     Active Substance: CALCITONIN
     Indication: Hypercalcaemia
     Dosage: 4 UNITS/KG BID FOR FIVE DOSES
  2. ZOLEDRONIC ACID [Suspect]
     Active Substance: ZOLEDRONIC ACID
     Indication: Hypercalcaemia
     Dosage: 4 UNITS/KG BID FOR FIVE DOSES

REACTIONS (1)
  - Drug ineffective [Unknown]
